FAERS Safety Report 8336327-0 (Version None)
Quarter: 2012Q1

REPORT INFORMATION
  Report Type: 
  Country: None (occurrence: None)
  Receive Date: 20120329
  Receipt Date: 20100326
  Transmission Date: 20120608
  Serious: Yes (Hospitalization, Other)
  Sender: FDA-Public Use
  Company Number: PHHY2010US18984

PATIENT
  Sex: Female

DRUGS (2)
  1. EXELON [Suspect]
  2. EXELON [Suspect]
     Dosage: UNK, TRANSDERMAL
     Route: 062
     Dates: start: 20091101

REACTIONS (5)
  - APPLICATION SITE RASH [None]
  - SKIN IRRITATION [None]
  - VOMITING [None]
  - DEHYDRATION [None]
  - APPLICATION SITE ERYTHEMA [None]
